FAERS Safety Report 4855433-6 (Version None)
Quarter: 2005Q4

REPORT INFORMATION
  Report Type: 
  Country: None (occurrence: None)
  Receive Date: 20051125
  Receipt Date: 20050223
  Transmission Date: 20060501
  Serious: Yes (Other)
  Sender: FDA-Public Use
  Company Number: 800286

PATIENT
  Age: 74 Year
  Sex: Male
  Weight: 96.6162 kg

DRUGS (23)
  1. DIANEAL [Suspect]
     Indication: PERITONEAL DIALYSIS
     Dosage: IP
  2. DIANEAL [Concomitant]
  3. HECTORAL [Concomitant]
  4. ASPIRIN [Concomitant]
  5. CLONIDINE [Concomitant]
  6. FOLIC ACID [Concomitant]
  7. GEMFIBROZIL [Concomitant]
  8. NOVOLIN 70/30 [Concomitant]
  9. INSULIN [Concomitant]
  10. ISOSORBIDE DINITRATE [Concomitant]
  11. FUROSEMIDE [Concomitant]
  12. LOPRESSOR [Concomitant]
  13. NEURONTIN [Concomitant]
  14. NITROSTAT [Concomitant]
  15. PHOSLO [Concomitant]
  16. PLAVIX [Concomitant]
  17. PRILOSEC [Concomitant]
  18. PYRIDOXINE HCL [Concomitant]
  19. RENAVITH [Concomitant]
  20. SYNTHROID [Concomitant]
  21. TERAZOSIN HYDROCHLORIDE [Concomitant]
  22. VITAMIN B-12 [Concomitant]
  23. EPOGEN [Concomitant]

REACTIONS (1)
  - PERITONITIS [None]
